FAERS Safety Report 9798758 (Version 2)
Quarter: 2015Q3

REPORT INFORMATION
  Report Type: Spontaneous
  Country: US (occurrence: US)
  Receive Date: 20140106
  Receipt Date: 20150806
  Transmission Date: 20151125
  Serious: Yes (Other)
  Sender: FDA-Public Use
  Company Number: US-GILEAD-2010-0030117

PATIENT
  Age: 84 Year
  Sex: Male
  Weight: 76.8 kg

DRUGS (14)
  1. LETAIRIS [Suspect]
     Active Substance: AMBRISENTAN
     Indication: PULMONARY ARTERIAL HYPERTENSION
     Route: 048
  2. VESICARE [Concomitant]
     Active Substance: SOLIFENACIN SUCCINATE
  3. LASIX [Concomitant]
     Active Substance: FUROSEMIDE
  4. XANAX [Concomitant]
     Active Substance: ALPRAZOLAM
  5. PAXIL [Concomitant]
     Active Substance: PAROXETINE HYDROCHLORIDE
  6. LIPITOR [Concomitant]
     Active Substance: ATORVASTATIN CALCIUM
  7. GABAPENTIN. [Concomitant]
     Active Substance: GABAPENTIN
  8. COUMADIN [Concomitant]
     Active Substance: WARFARIN SODIUM
  9. IRON [Concomitant]
     Active Substance: IRON
  10. K-DUR [Concomitant]
     Active Substance: POTASSIUM CHLORIDE
  11. MICARDIS [Concomitant]
     Active Substance: TELMISARTAN
  12. ANTARA [Concomitant]
     Active Substance: FENOFIBRATE
  13. UROXATRAL [Concomitant]
     Active Substance: ALFUZOSIN HYDROCHLORIDE
  14. REVATIO [Concomitant]
     Active Substance: SILDENAFIL CITRATE

REACTIONS (1)
  - No therapeutic response [Unknown]
